FAERS Safety Report 13621212 (Version 2)
Quarter: 2018Q1

REPORT INFORMATION
  Report Type: Spontaneous
  Country: JP (occurrence: JP)
  Receive Date: 20170607
  Receipt Date: 20180115
  Transmission Date: 20180508
  Serious: Yes (Other)
  Sender: FDA-Public Use
  Company Number: JP-ACCORD-045238

PATIENT
  Age: 65 Year
  Sex: Male

DRUGS (4)
  1. CISPLATIN. [Suspect]
     Active Substance: CISPLATIN
     Indication: EXTRAMAMMARY PAGET^S DISEASE
     Dosage: 2 WEEKS ON/2 WEEKS OFF, PET REGIMEN, PET REGIMEN
  2. PACLITAXEL/PACLITAXEL LIPOSOME [Suspect]
     Active Substance: PACLITAXEL
     Indication: EXTRAMAMMARY PAGET^S DISEASE
     Dosage: 2 WEEKS ON/2 WEEKS OFF, PET REGIMEN
  3. DOCETAXEL. [Suspect]
     Active Substance: DOCETAXEL
     Indication: EXTRAMAMMARY PAGET^S DISEASE
     Dosage: WEEKLY
  4. EPIRUBICIN [Suspect]
     Active Substance: EPIRUBICIN
     Indication: EXTRAMAMMARY PAGET^S DISEASE
     Dosage: 2 WEEKS ON/2 WEEKS OFF, PET REGIMEN, PET REGIMEN

REACTIONS (6)
  - Metastases to lymph nodes [None]
  - Malignant neoplasm progression [None]
  - Alopecia [Unknown]
  - Nausea [Unknown]
  - Haematotoxicity [Unknown]
  - Fatigue [Unknown]
